FAERS Safety Report 4359519-4 (Version None)
Quarter: 2004Q2

REPORT INFORMATION
  Report Type: 
  Country: None (occurrence: None)
  Receive Date: 20040512
  Receipt Date: 20040427
  Transmission Date: 20050107
  Serious: Yes (Death)
  Sender: FDA-Public Use
  Company Number: USA030229610

PATIENT
  Age: 85 Year
  Sex: Female

DRUGS (4)
  1. ZYPREXA [Suspect]
     Indication: AGITATION
     Dates: start: 20030127
  2. ZYPREXA [Suspect]
     Indication: CRYING
     Dates: start: 20030127
  3. GLUCOTROL [Concomitant]
  4. INSULIN [Concomitant]

REACTIONS (7)
  - AGITATION [None]
  - APHAGIA [None]
  - APHASIA [None]
  - BLOOD GLUCOSE INCREASED [None]
  - CEREBROVASCULAR ACCIDENT [None]
  - CRYING [None]
  - DRUG INEFFECTIVE [None]
